APPROVED DRUG PRODUCT: NOLUDAR
Active Ingredient: METHYPRYLON
Strength: 50MG/5ML
Dosage Form/Route: ELIXIR;ORAL
Application: N009660 | Product #007
Applicant: HOFFMANN LA ROCHE INC
Approved: Approved Prior to Jan 1, 1982 | RLD: No | RS: No | Type: DISCN